FAERS Safety Report 5497039-4 (Version None)
Quarter: 2007Q4

REPORT INFORMATION
  Report Type: 
  Country: None (occurrence: None)
  Receive Date: 20071023
  Receipt Date: 20071017
  Transmission Date: 20080405
  Serious: Yes (Death)
  Sender: FDA-Public Use
  Company Number: WAES 0710USA02990

PATIENT
  Age: 87 Year
  Sex: Female

DRUGS (6)
  1. HYZAAR [Suspect]
     Indication: HYPERTENSION
     Dosage: 50-12.5 MG/DAILY PO
     Route: 048
     Dates: start: 20070405
  2. CELECOXIB [Suspect]
     Indication: RHEUMATOID ARTHRITIS
     Dosage: PO
     Route: 048
     Dates: start: 20070728
  3. MG OXIDE [Concomitant]
  4. FLUVOXAMINE MALEATE [Concomitant]
  5. NIZATIDINE [Concomitant]
  6. SENNOSIDES [Concomitant]

REACTIONS (1)
  - MYOCARDIAL INFARCTION [None]
